FAERS Safety Report 13431163 (Version 1)
Quarter: 2017Q2

REPORT INFORMATION
  Report Type: Spontaneous
  Country: US (occurrence: US)
  Receive Date: 20170412
  Receipt Date: 20170412
  Transmission Date: 20170830
  Serious: No
  Sender: FDA-Public Use
  Company Number: None

PATIENT
  Age: 62 Year
  Sex: Female
  Weight: 67.59 kg

DRUGS (1)
  1. CIPROFLOXACIN 250MG [Suspect]
     Active Substance: CIPROFLOXACIN
     Indication: URINARY TRACT INFECTION
     Dosage: 1 PILL - X2 Q12HOURS  2X A DAY MOUTH
     Route: 048
     Dates: start: 20170223, end: 20170303

REACTIONS (10)
  - Neuropathy peripheral [None]
  - Sense of oppression [None]
  - Weight increased [None]
  - Myalgia [None]
  - Quality of life decreased [None]
  - Exercise tolerance decreased [None]
  - Pain [None]
  - Arthralgia [None]
  - Burning sensation [None]
  - Anger [None]

NARRATIVE: CASE EVENT DATE: 20170301
